FAERS Safety Report 12194434 (Version 3)
Quarter: 2016Q2

REPORT INFORMATION
  Report Type: Report from Study
  Country: US (occurrence: US)
  Receive Date: 20160321
  Receipt Date: 20160525
  Transmission Date: 20160815
  Serious: Yes (Death, Hospitalization)
  Sender: FDA-Public Use
  Company Number: US-ROCHE-1729015

PATIENT
  Age: 68 Year
  Sex: Female
  Weight: 66.5 kg

DRUGS (3)
  1. CETUXIMAB [Suspect]
     Active Substance: CETUXIMAB
     Indication: ADENOCARCINOMA OF COLON
     Route: 042
     Dates: start: 20160311
  2. VEMURAFENIB [Suspect]
     Active Substance: VEMURAFENIB
     Indication: ADENOCARCINOMA OF COLON
     Dosage: LAST DOSE OF VEMURAFENIB PRIOR TO THE EVENT ON 16/MAR/2016
     Route: 048
     Dates: start: 20160311
  3. IRINOTECAN [Suspect]
     Active Substance: IRINOTECAN
     Indication: ADENOCARCINOMA OF COLON
     Route: 042
     Dates: start: 20160311

REACTIONS (4)
  - Large intestine perforation [Recovered/Resolved]
  - Respiratory failure [Fatal]
  - Dehydration [Unknown]
  - Sepsis [Unknown]

NARRATIVE: CASE EVENT DATE: 20160316
